FAERS Safety Report 6940910-4 (Version None)
Quarter: 2010Q3

REPORT INFORMATION
  Report Type: 
  Country: None (occurrence: None)
  Receive Date: 20100825
  Receipt Date: 20100817
  Transmission Date: 20110219
  Serious: Yes (Hospitalization)
  Sender: FDA-Public Use
  Company Number: A0785080A

PATIENT
  Age: 62 Year
  Sex: Male
  Weight: 152.3 kg

DRUGS (5)
  1. AVANDIA [Suspect]
     Dosage: 2MG PER DAY
     Route: 048
     Dates: end: 20070919
  2. LISINOPRIL [Concomitant]
  3. SIMVASTATIN [Concomitant]
  4. LEXAPRO [Concomitant]
  5. GABAPENTIN [Concomitant]

REACTIONS (2)
  - MYOCARDIAL INFARCTION [None]
  - STENT PLACEMENT [None]
